FAERS Safety Report 25574141 (Version 2)
Quarter: 2025Q3

REPORT INFORMATION
  Report Type: Report from Study
  Country: CO (occurrence: CO)
  Receive Date: 20250717
  Receipt Date: 20250826
  Transmission Date: 20251020
  Serious: Yes (Hospitalization, Other)
  Sender: MERCK SHARP & DOHME LLC
  Company Number: CO-009507513-2266687

PATIENT
  Age: 63 Year
  Sex: Male

DRUGS (4)
  1. KEYTRUDA [Suspect]
     Active Substance: PEMBROLIZUMAB
     Indication: Renal cancer
     Route: 042
     Dates: start: 20241217, end: 20241217
  2. KEYTRUDA [Suspect]
     Active Substance: PEMBROLIZUMAB
     Indication: Renal cancer
     Route: 042
     Dates: start: 20250205, end: 20250205
  3. KEYTRUDA [Suspect]
     Active Substance: PEMBROLIZUMAB
     Indication: Renal cancer
     Route: 042
     Dates: start: 20250623, end: 20250623
  4. AXITINIB [Concomitant]
     Active Substance: AXITINIB
     Indication: Renal cancer
     Route: 048
     Dates: start: 20241217, end: 20241217

REACTIONS (4)
  - Hypotension [Recovering/Resolving]
  - Haemoglobin decreased [Recovering/Resolving]
  - Haemoglobin decreased [Recovered/Resolved]
  - Skin necrosis [Unknown]

NARRATIVE: CASE EVENT DATE: 20250201
